FAERS Safety Report 7897312-6 (Version None)
Quarter: 2011Q4

REPORT INFORMATION
  Report Type: 
  Country: None (occurrence: None)
  Receive Date: 20111107
  Receipt Date: 20111101
  Transmission Date: 20120403
  Serious: Yes (Death, Other)
  Sender: FDA-Public Use
  Company Number: PHHY2011IL96943

PATIENT
  Sex: Male

DRUGS (1)
  1. RITALIN LA [Suspect]
     Dosage: 10 MG, DAILY
     Route: 048

REACTIONS (4)
  - DEATH [None]
  - INTENTIONAL OVERDOSE [None]
  - DEPENDENCE [None]
  - INTENTIONAL DRUG MISUSE [None]
